FAERS Safety Report 19058692 (Version 2)
Quarter: 2021Q1

REPORT INFORMATION
  Report Type: Spontaneous
  Country: US (occurrence: US)
  Receive Date: 20210325
  Receipt Date: 20210330
  Transmission Date: 20210420
  Serious: No
  Sender: FDA-Public Use
  Company Number: US-SA-2021SA097986

PATIENT
  Age: 49 Year
  Sex: Female

DRUGS (2)
  1. DUPIXENT [Suspect]
     Active Substance: DUPILUMAB
     Indication: PSORIASIS
  2. DUPIXENT [Suspect]
     Active Substance: DUPILUMAB
     Indication: BLISTER
     Dosage: 300 MG, QOW
     Dates: start: 202010

REACTIONS (3)
  - Product used for unknown indication [Unknown]
  - Injection site discomfort [Recovering/Resolving]
  - Injection site pain [Recovering/Resolving]
